FAERS Safety Report 8299632-2 (Version None)
Quarter: 2012Q2

REPORT INFORMATION
  Report Type: 
  Country: None (occurrence: None)
  Receive Date: 20120419
  Receipt Date: 20120416
  Transmission Date: 20120825
  Serious: Yes (Death)
  Sender: FDA-Public Use
  Company Number: IL-GLAXOSMITHKLINE-B0796205A

PATIENT
  Age: 60 Year
  Sex: Female

DRUGS (2)
  1. TYKERB [Suspect]
     Indication: PRODUCT USED FOR UNKNOWN INDICATION
     Route: 065
  2. XELODA [Concomitant]

REACTIONS (1)
  - CONDITION AGGRAVATED [None]
